FAERS Safety Report 16900133 (Version 1)
Quarter: 2019Q4

REPORT INFORMATION
  Report Type: Spontaneous
  Country: US (occurrence: US)
  Receive Date: 20190816
  Receipt Date: 20190816
  Transmission Date: 20200122
  Serious: Yes (Death, Hospitalization)
  Sender: FDA-Public Use
  Company Number: None

PATIENT
  Age: 0 Day

DRUGS (5)
  1. DAUNORUBICIN [Suspect]
     Active Substance: DAUNORUBICIN
     Dates: end: 20190806
  2. VINCRISTINE SULFATE. [Suspect]
     Active Substance: VINCRISTINE SULFATE
     Dates: end: 20190806
  3. DEXAMETHASONE. [Suspect]
     Active Substance: DEXAMETHASONE
     Dates: end: 20190729
  4. METHOTREXATE. [Suspect]
     Active Substance: METHOTREXATE
     Dates: end: 20190805
  5. CYTARABINE. [Suspect]
     Active Substance: CYTARABINE
     Dates: end: 20190724

REACTIONS (8)
  - Tachycardia [None]
  - Thrombocytopenia [None]
  - Sepsis [None]
  - Neutropenia [None]
  - Bacteraemia [None]
  - Hypoxia [None]
  - Leukopenia [None]
  - Cardio-respiratory arrest [None]

NARRATIVE: CASE EVENT DATE: 20190811
